FAERS Safety Report 17516841 (Version 2)
Quarter: 2020Q1

REPORT INFORMATION
  Report Type: Spontaneous
  Country: RU (occurrence: RU)
  Receive Date: 20200309
  Receipt Date: 20200319
  Transmission Date: 20200409
  Serious: No
  Sender: FDA-Public Use
  Company Number: RU-ASTRAZENECA-2020SE32501

PATIENT
  Age: 6 Year
  Sex: Female

DRUGS (4)
  1. PULMICORT TURBUHALER [Suspect]
     Active Substance: BUDESONIDE
     Indication: SUBGLOTTIC LARYNGITIS
     Dosage: 0.25MG/ML UNKNOWN
     Route: 055
  2. ZYRTEC [Concomitant]
     Active Substance: CETIRIZINE HYDROCHLORIDE
  3. LORATADINE. [Concomitant]
     Active Substance: LORATADINE
  4. KETOTIFEN [Concomitant]
     Active Substance: KETOTIFEN

REACTIONS (1)
  - Off label use [Unknown]
